FAERS Safety Report 7225114-2 (Version None)
Quarter: 2011Q1

REPORT INFORMATION
  Report Type: 
  Country: None (occurrence: None)
  Receive Date: 20110113
  Receipt Date: 20110103
  Transmission Date: 20110831
  Serious: Yes (Congenital Anomaly)
  Sender: FDA-Public Use
  Company Number: A0680288A

PATIENT
  Sex: Male

DRUGS (1)
  1. PAXIL [Suspect]
     Dosage: 20MG UNKNOWN
     Dates: start: 20010725, end: 20020708

REACTIONS (7)
  - ATRIAL SEPTAL DEFECT [None]
  - PATENT DUCTUS ARTERIOSUS [None]
  - CONGENITAL ANOMALY [None]
  - MICROCEPHALY [None]
  - DYSMORPHISM [None]
  - DRUG EXPOSURE DURING PREGNANCY [None]
  - CONGENITAL ARTERIAL MALFORMATION [None]
